FAERS Safety Report 15328584 (Version 3)
Quarter: 2018Q3

REPORT INFORMATION
  Report Type: Report from Study
  Country: DE (occurrence: DE)
  Receive Date: 20180829
  Receipt Date: 20180927
  Transmission Date: 20181010
  Serious: Yes (Hospitalization)
  Sender: FDA-Public Use
  Company Number: DE-BIOGEN-2018BI00625724

PATIENT
  Sex: Male
  Weight: 82 kg

DRUGS (3)
  1. DEKRISTOL [Concomitant]
     Active Substance: CHOLECALCIFEROL
     Indication: VITAMIN D DEFICIENCY
     Dosage: 20000
     Route: 048
     Dates: start: 201710
  2. TYSABRI [Suspect]
     Active Substance: NATALIZUMAB
     Indication: MULTIPLE SCLEROSIS
     Route: 042
     Dates: start: 201105
  3. JODID [Concomitant]
     Active Substance: IODINE
     Indication: BLOOD THYROID STIMULATING HORMONE INCREASED
     Route: 048
     Dates: start: 20170804

REACTIONS (1)
  - Multiple sclerosis relapse [Not Recovered/Not Resolved]

NARRATIVE: CASE EVENT DATE: 20180730
